FAERS Safety Report 8903957 (Version 1)
Quarter: 2012Q4

REPORT INFORMATION
  Report Type: 
  Country: US (occurrence: US)
  Receive Date: 20121112
  Receipt Date: 20121112
  Transmission Date: 20130627
  Serious: Yes (Other)
  Sender: FDA-Public Use
  Company Number: US-MYLANLABS-2012S1022664

PATIENT
  Age: 56 Year
  Sex: Male

DRUGS (1)
  1. PACLITAXEL [Suspect]
     Indication: SMALL CELL LUNG CANCER METASTATIC
     Dosage: weekly
     Route: 050

REACTIONS (1)
  - Toxic skin eruption [Recovering/Resolving]
